FAERS Safety Report 12214665 (Version 1)
Quarter: 2016Q1

REPORT INFORMATION
  Report Type: Spontaneous
  Country: US (occurrence: None)
  Receive Date: 20160325
  Receipt Date: 20160325
  Transmission Date: 20160526
  Serious: No
  Sender: FDA-Public Use
  Company Number: None

PATIENT
  Age: 38 Year
  Sex: Female

DRUGS (1)
  1. HUMIRA [Suspect]
     Active Substance: ADALIMUMAB
     Indication: ANKYLOSING SPONDYLITIS
     Dosage: SUBCUTANEOUS 057 INJECTABLE EVERY OTHER WEEK
     Route: 058
     Dates: start: 20160216

REACTIONS (1)
  - Myalgia [None]

NARRATIVE: CASE EVENT DATE: 20160216
